FAERS Safety Report 18765098 (Version 5)
Quarter: 2021Q1

REPORT INFORMATION
  Report Type: Report from Study
  Country: HU (occurrence: HU)
  Receive Date: 20210120
  Receipt Date: 20210302
  Transmission Date: 20210419
  Serious: Yes (Other)
  Sender: FDA-Public Use
  Company Number: HU-PFIZER INC-2021032787

PATIENT
  Age: 79 Year
  Sex: Male
  Weight: 81 kg

DRUGS (13)
  1. COVEREX AS [Concomitant]
     Active Substance: PERINDOPRIL ARGININE
     Indication: HYPERTENSION
     Dosage: 5 MG, 1X/DAY (QD)
     Route: 048
     Dates: start: 2001
  2. ENZALUTAMIDE [Suspect]
     Active Substance: ENZALUTAMIDE
     Indication: PROSTATE CANCER METASTATIC
     Dosage: 160 MG, DAILY
     Route: 048
     Dates: start: 20200203, end: 20210114
  3. BISOPROLOL [Concomitant]
     Active Substance: BISOPROLOL
     Indication: HYPERTENSION
     Dosage: 5 MG, 2X/DAY (BID)
     Route: 048
     Dates: start: 2001
  4. NEO FERRO FOLGAMMA [Concomitant]
     Indication: ANAEMIA
     Dosage: 1 TABLET, 2X/DAY (BID)
     Route: 048
     Dates: start: 20200429
  5. TALAZOPARIB. [Suspect]
     Active Substance: TALAZOPARIB
     Indication: PROSTATE CANCER METASTATIC
     Dosage: UNK UNK, DAILY
     Route: 048
     Dates: start: 20200203, end: 20210114
  6. ROSUVASTATIN. [Concomitant]
     Active Substance: ROSUVASTATIN
     Indication: HYPERCHOLESTEROLAEMIA
     Dosage: 20 MG, 1X/DAY (QD)
     Route: 048
     Dates: start: 2001
  7. KALDYUM [Concomitant]
     Active Substance: POTASSIUM CHLORIDE
     Indication: SUPPLEMENTATION THERAPY
     Dosage: 600 MG, EVERY TWO DAYS
     Route: 048
     Dates: start: 2001
  8. FUROSEMID [Concomitant]
     Active Substance: FUROSEMIDE
     Indication: HYPERTENSION
     Dosage: 80 MG, 2X/DAY (BID)
     Route: 048
     Dates: start: 2001
  9. CHINOTAL [Concomitant]
     Active Substance: PENTOXIFYLLINE
     Indication: ARTERIOSCLEROSIS
     Dosage: 400 MG, 3X/DAY (TID)
     Route: 048
     Dates: start: 2010
  10. FENOBRAT [Concomitant]
     Indication: HYPERLIPIDAEMIA
     Dosage: 250 MG, 1X/DAY (QD)
     Route: 048
     Dates: start: 2005
  11. OLICARD [Concomitant]
     Active Substance: ISOSORBIDE MONONITRATE
     Indication: PROPHYLAXIS
     Dosage: 60 MG, 1X/DAY (QD)
     Route: 048
  12. ASPIRIN. [Concomitant]
     Active Substance: ASPIRIN
     Indication: PROPHYLAXIS
     Dosage: 1 TABLET, 1X/DAY (QD)
     Route: 048
     Dates: start: 2001, end: 20210115
  13. AMLODIPINE [Concomitant]
     Active Substance: AMLODIPINE BESYLATE
     Indication: HYPERTENSION
     Dosage: 10 MG, 1X/DAY (QD)
     Route: 048
     Dates: start: 2001

REACTIONS (1)
  - Pulmonary embolism [Not Recovered/Not Resolved]

NARRATIVE: CASE EVENT DATE: 20210111
